FAERS Safety Report 20993244 (Version 1)
Quarter: 2022Q2

REPORT INFORMATION
  Report Type: Spontaneous
  Country: US (occurrence: US)
  Receive Date: 20220622
  Receipt Date: 20220622
  Transmission Date: 20220720
  Serious: No
  Sender: FDA-Public Use
  Company Number: US-BRISTOL-MYERS SQUIBB COMPANY-2022-052537

PATIENT
  Age: 64 Year
  Sex: Male
  Weight: 101 kg

DRUGS (2)
  1. REVLIMID [Suspect]
     Active Substance: LENALIDOMIDE
     Indication: Plasma cell myeloma
     Dosage: 20 MG, DAILY DAYS 1-21, EVERY 28 DAYS
     Route: 048
     Dates: start: 20210511
  2. REVLIMID [Suspect]
     Active Substance: LENALIDOMIDE
     Indication: Plasmacytoma

REACTIONS (1)
  - COVID-19 [Not Recovered/Not Resolved]
